FAERS Safety Report 8543513-3 (Version None)
Quarter: 2012Q3

REPORT INFORMATION
  Report Type: 
  Country: None (occurrence: None)
  Receive Date: 20120727
  Receipt Date: 20120724
  Transmission Date: 20120928
  Serious: Yes (Other)
  Sender: FDA-Public Use
  Company Number: PHEH2012US014554

PATIENT
  Sex: Female

DRUGS (9)
  1. RECLAST [Suspect]
     Indication: OSTEOPOROSIS
     Dosage: UNK UKN, UNK
     Route: 042
  2. SYNTHROID [Concomitant]
     Dosage: 0.1 MG, UNK
  3. CALCIUM W/VITAMIN D NOS [Concomitant]
     Dosage: 1200 MG, UNK
  4. CRESTOR [Concomitant]
     Dosage: 10 MG, UNK
  5. VITAMIN E [Concomitant]
     Dosage: 600 MG EVERY OTHER DAY
  6. RECLAST [Suspect]
     Dosage: UNK UKN, UNK
     Route: 042
  7. RECLAST [Suspect]
     Dosage: UNK UKN, UNK
     Route: 042
  8. NEXIUM [Concomitant]
     Dosage: 40 MG, UNK
  9. RECLAST [Suspect]
     Dosage: UNK UKN, UNK
     Route: 042

REACTIONS (5)
  - DYSPEPSIA [None]
  - DIZZINESS [None]
  - NEPHROLITHIASIS [None]
  - NAUSEA [None]
  - HEADACHE [None]
